FAERS Safety Report 12876596 (Version 1)
Quarter: 2016Q4

REPORT INFORMATION
  Report Type: Spontaneous
  Country: US (occurrence: US)
  Receive Date: 20161021
  Receipt Date: 20161021
  Transmission Date: 20170207
  Serious: Yes (Death)
  Sender: FDA-Public Use
  Company Number: None

PATIENT
  Age: 79 Year
  Sex: Female

DRUGS (12)
  1. COUMADIN [Concomitant]
     Active Substance: WARFARIN SODIUM
  2. BUMETANIDE. [Concomitant]
     Active Substance: BUMETANIDE
  3. ARANESP [Suspect]
     Active Substance: DARBEPOETIN ALFA
     Indication: PULMONARY ARTERIAL HYPERTENSION
     Route: 058
     Dates: start: 20151118, end: 201512
  4. SPIRONOLACTONE. [Concomitant]
     Active Substance: SPIRONOLACTONE
  5. LISINOPRIL. [Concomitant]
     Active Substance: LISINOPRIL
  6. ADCIRCA [Concomitant]
     Active Substance: TADALAFIL
  7. HYDROXYZINE [Concomitant]
     Active Substance: HYDROXYZINE\HYDROXYZINE HYDROCHLORIDE
  8. LETAIRIS [Concomitant]
     Active Substance: AMBRISENTAN
  9. ATENOLOL. [Concomitant]
     Active Substance: ATENOLOL
  10. TRAZODONE [Concomitant]
     Active Substance: TRAZODONE HYDROCHLORIDE
  11. FAMOATE [Concomitant]
  12. MELATONIN [Concomitant]
     Active Substance: MELATONIN

REACTIONS (1)
  - Death [None]

NARRATIVE: CASE EVENT DATE: 20160919
